FAERS Safety Report 25869380 (Version 3)
Quarter: 2025Q4

REPORT INFORMATION
  Report Type: Spontaneous
  Country: US (occurrence: US)
  Receive Date: 20251001
  Receipt Date: 20251111
  Transmission Date: 20260118
  Serious: Yes (Hospitalization, Other)
  Sender: ACCORD
  Company Number: US-Accord-506341

PATIENT
  Age: 29 Year
  Sex: Female
  Weight: 50.3 kg

DRUGS (14)
  1. IRINOTECAN [Suspect]
     Active Substance: IRINOTECAN
     Indication: Ewing^s sarcoma
     Dosage: Q3WEEKS (50MG/M2 DAILY FOR 5 DAYS), IV DRIP
     Route: 042
     Dates: start: 20250303, end: 20250307
  2. TEMOZOLOMIDE [Suspect]
     Active Substance: TEMOZOLOMIDE
     Indication: Ewing^s sarcoma
     Dosage: Q3WEEKS (100MG/M2 DAILY FOR 5 DAYS), IV DRIP
     Dates: start: 20250303, end: 20250307
  3. MIRALAX [Concomitant]
     Active Substance: POLYETHYLENE GLYCOL 3350
     Dates: start: 20241210
  4. SENOKOT [Concomitant]
     Active Substance: SENNOSIDES
     Dates: start: 20241210
  5. ASPIRIN [Concomitant]
     Active Substance: ASPIRIN
     Dates: start: 20241210
  6. ALANINE;GLUTAMIC ACID [Concomitant]
     Dates: start: 20250314
  7. ATIVAN [Concomitant]
     Active Substance: LORAZEPAM
     Dates: start: 20250318
  8. FOSAPREPITANT DIMEGLUMINE [Concomitant]
     Active Substance: FOSAPREPITANT DIMEGLUMINE
     Dates: start: 20250319
  9. SCOPOLAMINE [Concomitant]
     Active Substance: SCOPOLAMINE
     Dates: start: 20250323
  10. SANCUSO [Concomitant]
     Active Substance: GRANISETRON
     Dates: start: 20250414
  11. OXYCODONE [Concomitant]
     Active Substance: OXYCODONE
     Dates: start: 20250425
  12. FENTANYL [Concomitant]
     Active Substance: FENTANYL
     Dates: start: 20250430
  13. PROCHLORPERAZINE [Concomitant]
     Active Substance: PROCHLORPERAZINE
     Dates: start: 20250114
  14. IRINOTECAN [Suspect]
     Active Substance: IRINOTECAN
     Indication: Ewing^s sarcoma
     Dosage: Q3WEEKS (50MG/M2 DAILY FOR 5 DAYS), IV DRIP
     Route: 042
     Dates: start: 20250818, end: 20250822

REACTIONS (1)
  - Neutropenic colitis [Recovered/Resolved]

NARRATIVE: CASE EVENT DATE: 20250825
